FAERS Safety Report 5076370-0 (Version None)
Quarter: 2006Q3

REPORT INFORMATION
  Report Type: 
  Country: None (occurrence: None)
  Receive Date: 20060807
  Receipt Date: 20060724
  Transmission Date: 20061208
  Serious: Yes (Other)
  Sender: FDA-Public Use
  Company Number: HQWYE618101AUG06

PATIENT
  Age: 1 Day
  Sex: Male

DRUGS (3)
  1. PANTOPRAZOLE SODIUM [Suspect]
     Indication: HELICOBACTER GASTRITIS
     Route: 064
     Dates: start: 19951008, end: 19951014
  2. METRONIDAZOLE [Suspect]
     Indication: HELICOBACTER GASTRITIS
     Dosage: 400 MG
     Route: 064
     Dates: start: 19951008, end: 19951014
  3. CLARITHROMYCIN [Suspect]
     Indication: HELICOBACTER GASTRITIS
     Dosage: 250 MG
     Route: 064
     Dates: start: 19951008, end: 19951014

REACTIONS (3)
  - CAESAREAN SECTION [None]
  - DRUG EXPOSURE DURING PREGNANCY [None]
  - PREMATURE BABY [None]
